FAERS Safety Report 9131944 (Version 1)
Quarter: 2013Q1

REPORT INFORMATION
  Report Type: Report from Study
  Country: US (occurrence: US)
  Receive Date: 20130301
  Receipt Date: 20130301
  Transmission Date: 20140127
  Serious: No
  Sender: FDA-Public Use
  Company Number: US-MYLANLABS-2012S1022925

PATIENT
  Age: 14 Year
  Sex: Female

DRUGS (9)
  1. AMNESTEEM CAPSULES [Suspect]
     Indication: ACNE CYSTIC
     Route: 048
     Dates: start: 20110325, end: 20110820
  2. AMNESTEEM CAPSULES [Suspect]
     Indication: ACNE
     Route: 048
     Dates: start: 20110325, end: 20110820
  3. AMNESTEEM CAPSULES [Suspect]
     Indication: ACNE CYSTIC
     Route: 048
  4. AMNESTEEM CAPSULES [Suspect]
     Indication: ACNE
     Route: 048
  5. AMNESTEEM CAPSULES [Suspect]
     Indication: ACNE CYSTIC
     Route: 048
  6. AMNESTEEM CAPSULES [Suspect]
     Indication: ACNE
     Route: 048
  7. AMNESTEEM CAPSULES [Suspect]
     Indication: ACNE CYSTIC
     Route: 048
  8. AMNESTEEM CAPSULES [Suspect]
     Indication: ACNE
     Route: 048
  9. SOLODYN [Concomitant]

REACTIONS (2)
  - Back pain [Not Recovered/Not Resolved]
  - Arthralgia [Not Recovered/Not Resolved]
